FAERS Safety Report 23139821 (Version 1)
Quarter: 2023Q4

REPORT INFORMATION
  Report Type: Report from Study
  Country: CA (occurrence: CA)
  Receive Date: 20231102
  Receipt Date: 20231102
  Transmission Date: 20240109
  Serious: Yes (Hospitalization, Other)
  Sender: FDA-Public Use
  Company Number: CA-BAYER-2023A131591

PATIENT
  Age: 80 Year
  Sex: Male

DRUGS (3)
  1. NUBEQA [Suspect]
     Active Substance: DAROLUTAMIDE
     Indication: Hormone-dependent prostate cancer
     Dosage: 600 MG, BID
     Dates: start: 20230907
  2. LUPRON [Concomitant]
     Active Substance: LEUPROLIDE ACETATE
     Indication: Hormone-dependent prostate cancer
     Dosage: UNK
  3. DOCETAXEL [Concomitant]
     Active Substance: DOCETAXEL\DOCETAXEL ANHYDROUS
     Dosage: UNK

REACTIONS (8)
  - Metastases to bone [Unknown]
  - Mobility decreased [Unknown]
  - Muscular weakness [Unknown]
  - Pain in extremity [Unknown]
  - Lower limb fracture [Unknown]
  - Peripheral swelling [Recovering/Resolving]
  - Gait inability [Unknown]
  - Metastasis [Not Recovered/Not Resolved]
